FAERS Safety Report 19398964 (Version 1)
Quarter: 2021Q2

REPORT INFORMATION
  Report Type: Spontaneous
  Country: US (occurrence: US)
  Receive Date: 20210610
  Receipt Date: 20210610
  Transmission Date: 20210717
  Serious: No
  Sender: FDA-Public Use
  Company Number: None

PATIENT
  Age: 75 Year
  Sex: Female

DRUGS (1)
  1. BRINZOLAMIDE [Suspect]
     Active Substance: BRINZOLAMIDE
     Indication: GLAUCOMA
     Route: 047

REACTIONS (5)
  - Dysphonia [None]
  - Oropharyngeal pain [None]
  - Product dispensing error [None]
  - Dysgeusia [None]
  - Product substitution error [None]

NARRATIVE: CASE EVENT DATE: 20210515
